FAERS Safety Report 24045553 (Version 1)
Quarter: 2024Q3

REPORT INFORMATION
  Report Type: Spontaneous
  Country: US (occurrence: None)
  Receive Date: 20240702
  Receipt Date: 20240702
  Transmission Date: 20241017
  Serious: Yes (Hospitalization)
  Sender: Public
  Company Number: None

PATIENT
  Age: 71 Year
  Sex: Female

DRUGS (16)
  1. OPSUMIT [Suspect]
     Active Substance: MACITENTAN
     Indication: Pulmonary hypertension
     Dosage: FREQUENCY : DAILY;?
     Route: 048
     Dates: start: 20151201, end: 20240629
  2. SILDENAFIL [Concomitant]
     Active Substance: SILDENAFIL
  3. TREPROSTINIL [Concomitant]
     Active Substance: TREPROSTINIL
  4. WARFARIN [Concomitant]
     Active Substance: WARFARIN
  5. HYDROXYCHLOROQUINE [Concomitant]
     Active Substance: HYDROXYCHLOROQUINE
  6. DIGOXIN [Concomitant]
     Active Substance: DIGOXIN
  7. ROSUVASTATIN [Concomitant]
     Active Substance: ROSUVASTATIN
  8. DUONEB [Concomitant]
     Active Substance: ALBUTEROL SULFATE\IPRATROPIUM BROMIDE
  9. COLACE [Concomitant]
     Active Substance: DOCUSATE SODIUM
  10. HYDRALAZINE [Concomitant]
     Active Substance: HYDRALAZINE HYDROCHLORIDE
  11. PANTOPRAZOLE [Concomitant]
     Active Substance: PANTOPRAZOLE
  12. LOSARTAN [Concomitant]
     Active Substance: LOSARTAN
  13. CARVEDILOL [Concomitant]
     Active Substance: CARVEDILOL
  14. TYLENOL [Concomitant]
     Active Substance: ACETAMINOPHEN
  15. ROBITUSSIN DM [Concomitant]
     Active Substance: DEXTROMETHORPHAN HYDROBROMIDE\GUAIFENESIN
  16. ASCORBIC [Concomitant]

REACTIONS (5)
  - Acute kidney injury [None]
  - Hypophagia [None]
  - Refusal of treatment by relative [None]
  - Nervous system disorder [None]
  - Therapy cessation [None]

NARRATIVE: CASE EVENT DATE: 20240618
